FAERS Safety Report 8985178 (Version 1)
Quarter: 2012Q4

REPORT INFORMATION
  Report Type: 
  Country: BR (occurrence: BR)
  Receive Date: 20121226
  Receipt Date: 20121226
  Transmission Date: 20130627
  Serious: Yes (Other)
  Sender: FDA-Public Use
  Company Number: PHHY2012BR119113

PATIENT
  Sex: Female
  Weight: 68 kg

DRUGS (5)
  1. MERIGEST [Suspect]
     Indication: HORMONE REPLACEMENT THERAPY
     Dosage: 1 DF daily
     Route: 048
  2. TOTELLE [Suspect]
     Dosage: 1 mg daily
     Route: 048
  3. TOTELLE [Suspect]
     Dosage: 2 DF daily
     Route: 048
     Dates: start: 20121218
  4. LOSARTAN [Concomitant]
     Indication: HYPERTENSION
     Dosage: 1 DF daily
     Route: 048
  5. VERAPAMIL [Concomitant]
     Indication: HYPERTENSION
     Dosage: 2 DF daily
     Route: 048

REACTIONS (2)
  - Osteoarthritis [Recovering/Resolving]
  - Vaginal haemorrhage [Not Recovered/Not Resolved]
